FAERS Safety Report 25903255 (Version 1)
Quarter: 2025Q4

REPORT INFORMATION
  Report Type: Spontaneous
  Country: EU (occurrence: EU)
  Receive Date: 20251009
  Receipt Date: 20251009
  Transmission Date: 20260117
  Serious: Yes (Other)
  Sender: ELI LILLY AND COMPANY
  Company Number: EU-ELI_LILLY_AND_COMPANY-DE202510002247

PATIENT
  Sex: Female

DRUGS (1)
  1. OMVOH [Suspect]
     Active Substance: MIRIKIZUMAB-MRKZ
     Indication: Inflammatory bowel disease
     Dosage: UNK UNK, UNKNOWN
     Route: 065

REACTIONS (1)
  - Metastasis [Unknown]
